FAERS Safety Report 4509727-4 (Version None)
Quarter: 2004Q4

REPORT INFORMATION
  Report Type: 
  Country: None (occurrence: None)
  Receive Date: 20041119
  Receipt Date: 20041111
  Transmission Date: 20050328
  Serious: Yes (Other)
  Sender: FDA-Public Use
  Company Number: 210296

PATIENT
  Age: 57 Year
  Sex: Male
  Weight: 82 kg

DRUGS (5)
  1. XOLAIR [Suspect]
     Indication: ASTHMA
     Dosage: 300 MG, Q4W
     Dates: start: 20040101
  2. XOPENEX [Concomitant]
  3. ADVAIR (FLUTICASONE PROPIONATE, SALMETEROL XINAFOATE) [Concomitant]
  4. NORVASC [Concomitant]
  5. ZOCOR [Concomitant]

REACTIONS (4)
  - AMYLOIDOSIS [None]
  - ENDOTRACHEAL INTUBATION COMPLICATION [None]
  - SURGERY [None]
  - TRACHEAL DISORDER [None]
